FAERS Safety Report 10431042 (Version 1)
Quarter: 2014Q3

REPORT INFORMATION
  Report Type: Spontaneous
  Country: DK (occurrence: FR)
  Receive Date: 20140904
  Receipt Date: 20140904
  Transmission Date: 20150326
  Serious: Yes (Hospitalization)
  Sender: FDA-Public Use
  Company Number: FR-FRI-1000070382

PATIENT
  Age: 49 Year
  Sex: Female

DRUGS (4)
  1. TERCIAN [Suspect]
     Active Substance: CYAMEMAZINE
     Dosage: OVERDOSE 4,000 MG ONCE NOS.
     Route: 048
     Dates: start: 20131105, end: 20131105
  2. NORSET [Suspect]
     Active Substance: MIRTAZAPINE
     Dosage: OVERDOSE 2,400 MG ONCE NOS.
     Route: 048
     Dates: start: 20131105, end: 20131105
  3. PARACETAMOL [Suspect]
     Active Substance: ACETAMINOPHEN
     Dosage: OVERDOSE 8,000 MG ONCE NOS.
     Route: 048
     Dates: start: 20131105, end: 20131105
  4. ESCITALOPRAM [Suspect]
     Active Substance: ESCITALOPRAM OXALATE
     Dosage: OVERDOSE 4 DF ONCE NOS.
     Route: 048
     Dates: start: 20131105, end: 20131105

REACTIONS (6)
  - Poisoning deliberate [Recovered/Resolved]
  - Somnolence [Recovered/Resolved]
  - Tachycardia [Recovered/Resolved]
  - Suicide attempt [Recovered/Resolved]
  - Paraesthesia [Recovered/Resolved]
  - Intentional overdose [Recovered/Resolved]

NARRATIVE: CASE EVENT DATE: 20131105
